FAERS Safety Report 9962271 (Version 4)
Quarter: 2014Q4

REPORT INFORMATION
  Report Type: Spontaneous
  Country: US (occurrence: US)
  Receive Date: 20140305
  Receipt Date: 20141015
  Transmission Date: 20150529
  Serious: Yes (Other)
  Sender: FDA-Public Use
  Company Number: US-BAYER-2014-033873

PATIENT
  Age: 22 Year
  Sex: Female
  Weight: 66 kg

DRUGS (1)
  1. MIRENA [Suspect]
     Active Substance: LEVONORGESTREL
     Dosage: 20 MCG/24HR, CONT
     Route: 015
     Dates: start: 20080422, end: 20100318

REACTIONS (9)
  - Device dislocation [None]
  - Abdominal pain [None]
  - Device issue [None]
  - Dysmenorrhoea [None]
  - Device dislocation [None]
  - Injury [None]
  - Medical device pain [None]
  - Infection [None]
  - Menorrhagia [None]

NARRATIVE: CASE EVENT DATE: 200804
